FAERS Safety Report 5570956-2 (Version None)
Quarter: 2007Q4

REPORT INFORMATION
  Report Type: 
  Country: None (occurrence: None)
  Receive Date: 20071221
  Receipt Date: 20071218
  Transmission Date: 20080405
  Serious: Yes (Other)
  Sender: FDA-Public Use
  Company Number: IE-JNJFOC-20071109252

PATIENT
  Sex: Male

DRUGS (6)
  1. RISPERDAL [Suspect]
     Indication: ABNORMAL BEHAVIOUR
     Route: 048
  2. RISPERDAL [Suspect]
     Indication: AGGRESSION
     Route: 048
  3. VALPROATE SODIUM [Concomitant]
     Indication: EPILEPSY
     Route: 065
  4. TRIPTORELIN [Concomitant]
     Indication: HORMONE LEVEL ABNORMAL
     Route: 065
  5. CARBOPLATIN [Concomitant]
     Indication: CHEMOTHERAPY
     Route: 065
  6. VINCRISTINE [Concomitant]
     Indication: CHEMOTHERAPY
     Route: 065

REACTIONS (1)
  - CONVULSION [None]
